FAERS Safety Report 4321200-5 (Version None)
Quarter: 2004Q1

REPORT INFORMATION
  Report Type: 
  Country: None (occurrence: None)
  Receive Date: 20040322
  Receipt Date: 20040322
  Transmission Date: 20041129
  Serious: Yes (Disabling)
  Sender: FDA-Public Use
  Company Number: None

PATIENT
  Age: 36 Year
  Sex: Male
  Weight: 78.4723 kg

DRUGS (2)
  1. ZICAM ZICAM LLC PHOENIX [Suspect]
     Indication: NASOPHARYNGITIS
  2. . [Concomitant]

REACTIONS (3)
  - DYSGEUSIA [None]
  - NASAL DISCOMFORT [None]
  - PAROSMIA [None]
